FAERS Safety Report 7362123 (Version 7)
Quarter: 2014Q3

REPORT INFORMATION
  Report Type: Spontaneous
  Country: US (occurrence: US)
  Receive Date: 20100405
  Receipt Date: 20140825
  Transmission Date: 20150326
  Serious: Yes (Hospitalization)
  Sender: FDA-Public Use
  Company Number: US-009507513-2009SP042237

PATIENT
  Sex: Female
  Weight: 69.4 kg

DRUGS (10)
  1. NUVARING [Suspect]
     Active Substance: ETHINYL ESTRADIOL\ETONOGESTREL
     Indication: MENOMETRORRHAGIA
     Dosage: UNK UNK, QM
     Route: 067
     Dates: start: 20070912, end: 2008
  2. NUVARING [Suspect]
     Active Substance: ETHINYL ESTRADIOL\ETONOGESTREL
     Indication: DYSMENORRHOEA
  3. ASCORBIC ACID. [Concomitant]
     Active Substance: ASCORBIC ACID
     Dosage: 500 MG, QD
     Route: 048
  4. NUVARING [Suspect]
     Active Substance: ETHINYL ESTRADIOL\ETONOGESTREL
     Indication: DYSFUNCTIONAL UTERINE BLEEDING
  5. NUVARING [Suspect]
     Active Substance: ETHINYL ESTRADIOL\ETONOGESTREL
     Indication: CONTRACEPTION
  6. VITAMINS (UNSPECIFIED) [Concomitant]
     Active Substance: VITAMINS
     Dosage: UNK UNK, QD
     Route: 048
  7. FERROUS SULFATE [Concomitant]
     Active Substance: FERROUS SULFATE\FERROUS SULFATE, DRIED
     Dosage: SUSTAINED RELEASE
     Route: 048
  8. CLARITIN [Concomitant]
     Active Substance: LORATADINE
     Indication: HYPERSENSITIVITY
     Dosage: EVERY OTHER DAY ON AND OFF SINCE 2005
     Dates: start: 2005
  9. PROTONIX [Concomitant]
     Active Substance: PANTOPRAZOLE SODIUM
     Dosage: DELAYED RELEASE
     Route: 048
  10. LORAZEPAM. [Concomitant]
     Active Substance: LORAZEPAM
     Dosage: 0.5 MG, UNK
     Route: 048

REACTIONS (11)
  - Back pain [Unknown]
  - Normochromic normocytic anaemia [Not Recovered/Not Resolved]
  - Bronchitis [Unknown]
  - Lymphadenopathy mediastinal [Unknown]
  - Rhinitis allergic [Unknown]
  - Tooth disorder [Unknown]
  - Haematuria [Unknown]
  - Sarcoidosis [Unknown]
  - Deep vein thrombosis [Unknown]
  - Vaginitis bacterial [Unknown]
  - Off label use [Unknown]

NARRATIVE: CASE EVENT DATE: 2008
